FAERS Safety Report 5682244-4 (Version None)
Quarter: 2008Q1

REPORT INFORMATION
  Report Type: 
  Country: None (occurrence: None)
  Receive Date: 20080325
  Receipt Date: 20080313
  Transmission Date: 20080703
  Serious: Yes (Hospitalization)
  Sender: FDA-Public Use
  Company Number: 100#08#2008-01450

PATIENT
  Age: 38 Year
  Sex: Female

DRUGS (2)
  1. LITHIUM CARBONATE [Suspect]
     Indication: DEPRESSION
     Dates: start: 20040701, end: 20060201
  2. LITHIUM CARBONATE [Suspect]
     Indication: PROPHYLAXIS
     Dates: start: 20040701, end: 20060201

REACTIONS (6)
  - BLOOD CHOLESTEROL INCREASED [None]
  - BLOOD TRIGLYCERIDES INCREASED [None]
  - DRUG INEFFECTIVE [None]
  - GLUCOSE TOLERANCE IMPAIRED [None]
  - HEPATIC STEATOSIS [None]
  - HYPERLIPIDAEMIA [None]
